FAERS Safety Report 6648431-3 (Version None)
Quarter: 2010Q1

REPORT INFORMATION
  Report Type: 
  Country: None (occurrence: None)
  Receive Date: 20100319
  Receipt Date: 20100301
  Transmission Date: 20100710
  Serious: Yes (Other)
  Sender: FDA-Public Use
  Company Number: 2010SP013161

PATIENT
  Sex: Male

DRUGS (1)
  1. NASONEX [Suspect]
     Indication: NASAL CONGESTION
     Dosage: 200 MCG;BID;NAS
     Route: 045

REACTIONS (1)
  - NASAL SEPTUM PERFORATION [None]
